FAERS Safety Report 25673604 (Version 1)
Quarter: 2025Q3

REPORT INFORMATION
  Report Type: Spontaneous
  Country: EU (occurrence: EU)
  Receive Date: 20250813
  Receipt Date: 20250813
  Transmission Date: 20251020
  Serious: Yes (Other)
  Sender: BIOVITRUM
  Company Number: EU-BIOVITRUM-2025-FR-011011

PATIENT

DRUGS (1)
  1. KINERET [Suspect]
     Active Substance: ANAKINRA
     Indication: Product used for unknown indication

REACTIONS (10)
  - Haemorrhoids [Recovered/Resolved]
  - Weight increased [Unknown]
  - Joint injury [Recovered/Resolved]
  - Haemangioma of liver [Unknown]
  - Hypertension [Unknown]
  - Giant cell arteritis [Recovered/Resolved]
  - Productive cough [Recovered/Resolved]
  - C-reactive protein increased [Unknown]
  - Accident [Recovered/Resolved]
  - Disease recurrence [Recovered/Resolved]

NARRATIVE: CASE EVENT DATE: 20210527
